FAERS Safety Report 4770310-7 (Version None)
Quarter: 2005Q3

REPORT INFORMATION
  Report Type: 
  Country: None (occurrence: None)
  Receive Date: 20050915
  Receipt Date: 20050411
  Transmission Date: 20060218
  Serious: No
  Sender: FDA-Public Use
  Company Number: US-GLAXOSMITHKLINE-A0554346A

PATIENT
  Age: 59 Year
  Sex: Male

DRUGS (1)
  1. ABREVA [Suspect]
     Indication: DRUG USE FOR UNKNOWN INDICATION
     Dates: start: 20050411, end: 20050411

REACTIONS (3)
  - DRUG ADMINISTRATION ERROR [None]
  - EYE DISORDER [None]
  - OCULAR HYPERAEMIA [None]
